FAERS Safety Report 19924726 (Version 2)
Quarter: 2021Q4

REPORT INFORMATION
  Report Type: Spontaneous
  Country: US (occurrence: US)
  Receive Date: 20211006
  Receipt Date: 20211028
  Transmission Date: 20220304
  Serious: Yes (Hospitalization, Other)
  Sender: FDA-Public Use
  Company Number: US-JNJFOC-A-NJ2019-192176

PATIENT
  Age: 39 Year
  Sex: Female
  Weight: 72.56 kg

DRUGS (10)
  1. UPTRAVI [Suspect]
     Active Substance: SELEXIPAG
     Indication: Pulmonary arterial hypertension
     Dosage: 200 MCG, BID
     Route: 048
     Dates: start: 2018
  2. UPTRAVI [Suspect]
     Active Substance: SELEXIPAG
     Dosage: 400 MCG, BID
     Route: 048
     Dates: start: 20190630
  3. UPTRAVI [Suspect]
     Active Substance: SELEXIPAG
     Dosage: 600 MCG
     Route: 048
     Dates: start: 20190707
  4. UPTRAVI [Suspect]
     Active Substance: SELEXIPAG
     Dosage: 1200 MCG, BID
     Route: 048
  5. UPTRAVI [Suspect]
     Active Substance: SELEXIPAG
     Dosage: 1000 MCG, BID
     Route: 048
  6. UPTRAVI [Suspect]
     Active Substance: SELEXIPAG
     Dosage: 800 MCG, BID
     Route: 048
  7. OPSUMIT [Suspect]
     Active Substance: MACITENTAN
     Indication: Pulmonary arterial hypertension
     Dosage: 10 MG, QD
     Route: 048
  8. ADCIRCA [Concomitant]
     Active Substance: TADALAFIL
  9. WARFARIN [Concomitant]
     Active Substance: WARFARIN
  10. AMLODIPINE [Concomitant]
     Active Substance: AMLODIPINE BESYLATE

REACTIONS (21)
  - Fall [Unknown]
  - Pneumonia [Unknown]
  - Pain in extremity [Unknown]
  - Cerebral haemorrhage [Recovering/Resolving]
  - Brain operation [Unknown]
  - Amnesia [Not Recovered/Not Resolved]
  - Head injury [Unknown]
  - Vomiting [Unknown]
  - Loss of consciousness [Unknown]
  - Headache [Unknown]
  - Arthralgia [Unknown]
  - Paranasal sinus discomfort [Unknown]
  - Myalgia [Unknown]
  - Decreased appetite [Unknown]
  - Nausea [Unknown]
  - Insomnia [Unknown]
  - Fatigue [Unknown]
  - Dizziness [Unknown]
  - Feeling abnormal [Unknown]
  - Pain [Unknown]
  - Illness [Unknown]

NARRATIVE: CASE EVENT DATE: 20200101
